FAERS Safety Report 6674463-5 (Version None)
Quarter: 2010Q2

REPORT INFORMATION
  Report Type: 
  Country: None (occurrence: None)
  Receive Date: 20100409
  Receipt Date: 20100407
  Transmission Date: 20101027
  Serious: Yes (Death, Hospitalization, Other)
  Sender: FDA-Public Use
  Company Number: PHEH2009US17061

PATIENT
  Sex: Female
  Weight: 67.58 kg

DRUGS (8)
  1. EXJADE [Suspect]
     Dosage: 500 UNK, TID
     Route: 048
     Dates: start: 20060314, end: 20100303
  2. EXJADE [Suspect]
     Dosage: UNK
     Route: 048
  3. CLONIDINE [Concomitant]
  4. HYDROXYUREA [Concomitant]
  5. NORVASC [Concomitant]
  6. INDOCIN [Concomitant]
  7. COLCHICINE [Concomitant]
  8. DILAUDID [Concomitant]

REACTIONS (4)
  - DEATH [None]
  - DIALYSIS [None]
  - RENAL FAILURE [None]
  - SICKLE CELL ANAEMIA [None]
